FAERS Safety Report 8525323-6 (Version None)
Quarter: 2012Q3

REPORT INFORMATION
  Report Type: 
  Country: None (occurrence: None)
  Receive Date: 20120720
  Receipt Date: 20120718
  Transmission Date: 20120928
  Serious: Yes (Hospitalization)
  Sender: FDA-Public Use
  Company Number: PHHY2012FR061987

PATIENT
  Sex: Female

DRUGS (9)
  1. LESCOL [Suspect]
     Dosage: 1 DF, DAILY
     Route: 048
     Dates: end: 20120507
  2. ASPIRIN [Concomitant]
  3. SECTRAL [Concomitant]
  4. MONICOR [Concomitant]
  5. REPAGLINIDE [Concomitant]
  6. LANSOPRAZOLE [Concomitant]
  7. AZILECT [Concomitant]
  8. MODOPAR [Concomitant]
  9. METFORMIN HCL [Concomitant]

REACTIONS (5)
  - GAIT DISTURBANCE [None]
  - FALL [None]
  - RHABDOMYOLYSIS [None]
  - MYALGIA [None]
  - MUSCULAR WEAKNESS [None]
